FAERS Safety Report 14730334 (Version 2)
Quarter: 2018Q2

REPORT INFORMATION
  Report Type: Spontaneous
  Country: US (occurrence: US)
  Receive Date: 20180406
  Receipt Date: 20180410
  Transmission Date: 20180711
  Serious: No
  Sender: FDA-Public Use
  Company Number: US-PFIZER INC-2018140761

PATIENT
  Age: 70 Year
  Sex: Female
  Weight: 74.83 kg

DRUGS (2)
  1. LYRICA [Suspect]
     Active Substance: PREGABALIN
     Indication: FIBROMYALGIA
     Dosage: 100 MG, 3X/DAY (100MG CAPSULE AT NOON AND 2 CAPSULES AT NIGHT)
     Route: 048
     Dates: start: 2015
  2. LYRICA [Suspect]
     Active Substance: PREGABALIN
     Dosage: 300 MG, DAILY (100MG CAPSULE AT NOON AND 200MG AT NIGHT)

REACTIONS (8)
  - Drug withdrawal syndrome [Recovering/Resolving]
  - Hot flush [Recovering/Resolving]
  - Cough [Unknown]
  - Condition aggravated [Unknown]
  - Fibromyalgia [Unknown]
  - Hypersensitivity [Not Recovered/Not Resolved]
  - Headache [Recovering/Resolving]
  - Dysphonia [Unknown]

NARRATIVE: CASE EVENT DATE: 201803
